FAERS Safety Report 5591834-9 (Version None)
Quarter: 2008Q1

REPORT INFORMATION
  Report Type: 
  Country: None (occurrence: None)
  Receive Date: 20080115
  Receipt Date: 20080110
  Transmission Date: 20080703
  Serious: Yes (Hospitalization)
  Sender: FDA-Public Use
  Company Number: B0499210A

PATIENT
  Age: 33 Year
  Sex: Male

DRUGS (1)
  1. AUGMENTIN '125' [Suspect]
     Indication: TOOTH ABSCESS
     Route: 048
     Dates: start: 20071130, end: 20071130

REACTIONS (4)
  - OBSTRUCTIVE AIRWAYS DISORDER [None]
  - PALATAL OEDEMA [None]
  - PRURITUS GENERALISED [None]
  - URTICARIA [None]
